FAERS Safety Report 8761948 (Version 3)
Quarter: 2013Q1

REPORT INFORMATION
  Report Type: Spontaneous
  Country: US (occurrence: US)
  Receive Date: 20120830
  Receipt Date: 20130312
  Transmission Date: 20140127
  Serious: No
  Sender: FDA-Public Use
  Company Number: US-ASTRAZENECA-2012SE57889

PATIENT
  Age: 60 Year
  Sex: Female

DRUGS (2)
  1. NEXIUM [Suspect]
     Route: 048
  2. PROTONIX [Suspect]
     Route: 065

REACTIONS (4)
  - Gastric disorder [Unknown]
  - Balance disorder [Unknown]
  - Malaise [Unknown]
  - Drug dose omission [Unknown]
